FAERS Safety Report 13578319 (Version 1)
Quarter: 2017Q2

REPORT INFORMATION
  Report Type: Spontaneous
  Country: US (occurrence: US)
  Receive Date: 20170524
  Receipt Date: 20170524
  Transmission Date: 20170830
  Serious: Yes (Hospitalization, Other)
  Sender: FDA-Public Use
  Company Number: US-DEPOMED, INC.-US-2017DEP001070

PATIENT
  Age: 6 Month
  Sex: Male
  Weight: 4.7 kg

DRUGS (13)
  1. METHADONE [Suspect]
     Active Substance: METHADONE HYDROCHLORIDE
     Indication: MECHANICAL VENTILATION
     Dosage: 0.15 MG/KG, EVERY 6 HRS (INFUSION)
  2. MIDAZOLAM [Suspect]
     Active Substance: MIDAZOLAM HYDROCHLORIDE
     Dosage: ONE DOSE
  3. FENTANYL. [Suspect]
     Active Substance: FENTANYL
     Dosage: 3 DOSES
     Route: 040
  4. MIDAZOLAM [Suspect]
     Active Substance: MIDAZOLAM HYDROCHLORIDE
     Indication: MECHANICAL VENTILATION
     Dosage: 3 MCG/KG/MIN (INFUSION)
     Route: 065
  5. MIDAZOLAM [Suspect]
     Active Substance: MIDAZOLAM HYDROCHLORIDE
     Indication: AGITATION
     Dosage: UNK
     Route: 040
  6. DEXMEDETOMIDINE. [Suspect]
     Active Substance: DEXMEDETOMIDINE
     Indication: MECHANICAL VENTILATION
     Dosage: 2 MCG/KG/HR (INFUSION)
     Route: 065
  7. DEXMEDETOMIDINE. [Suspect]
     Active Substance: DEXMEDETOMIDINE
     Dosage: ONE DOSE
     Route: 040
  8. FENTANYL. [Suspect]
     Active Substance: FENTANYL
     Indication: MECHANICAL VENTILATION
     Dosage: 1 MCG/KG/HR (INFUSION)
  9. PHENOBARBITAL. [Suspect]
     Active Substance: PHENOBARBITAL
     Indication: MECHANICAL VENTILATION
     Dosage: 5 MG/KG/DAY (INFUSION)
  10. DIAZEPAM. [Suspect]
     Active Substance: DIAZEPAM
     Indication: MECHANICAL VENTILATION
     Dosage: 0.15 MG/KG, EVERY 6 HRS (INFUSION)
  11. FENTANYL. [Suspect]
     Active Substance: FENTANYL
     Indication: AGITATION
     Dosage: UNK
     Route: 040
  12. GABAPENTIN. [Suspect]
     Active Substance: GABAPENTIN
     Indication: MECHANICAL VENTILATION
     Dosage: 5 MG/KG, EVERY 8 HOURS (INFUSION)
  13. DEXMEDETOMIDINE. [Suspect]
     Active Substance: DEXMEDETOMIDINE
     Indication: AGITATION
     Dosage: UNK
     Route: 040

REACTIONS (1)
  - Delirium [Recovering/Resolving]
